APPROVED DRUG PRODUCT: NAPROXEN SODIUM
Active Ingredient: NAPROXEN SODIUM
Strength: 220MG
Dosage Form/Route: TABLET;ORAL
Application: A211065 | Product #001
Applicant: HETERO LABS LTD UNIT V
Approved: Oct 28, 2022 | RLD: No | RS: No | Type: OTC